FAERS Safety Report 8759072 (Version 1)
Quarter: 2012Q4

REPORT INFORMATION
  Report Type: 
  Country: BR (occurrence: BR)
  Receive Date: 20120829
  Receipt Date: 20120829
  Transmission Date: 20130627
  Serious: Yes (Death)
  Sender: FDA-Public Use
  Company Number: BR-PAR PHARMACEUTICAL, INC-2012SCPR004587

PATIENT

DRUGS (1)
  1. CABERGOLINE [Suspect]
     Indication: PITUITARY TUMOUR BENIGN
     Dosage: 3.5 mg/ week
     Route: 065

REACTIONS (2)
  - Pituitary haemorrhage [Fatal]
  - Death [Fatal]
